FAERS Safety Report 23402235 (Version 2)
Quarter: 2024Q1

REPORT INFORMATION
  Report Type: Spontaneous
  Country: US (occurrence: US)
  Receive Date: 20240115
  Receipt Date: 20240319
  Transmission Date: 20240409
  Serious: Yes (Other)
  Sender: FDA-Public Use
  Company Number: US-PFIZER INC-202300396452

PATIENT
  Age: 48 Year
  Sex: Female

DRUGS (2)
  1. OXBRYTA [Suspect]
     Active Substance: VOXELOTOR
     Dosage: 1000 MG, 1X/DAY
     Route: 048
     Dates: end: 202401
  2. OXBRYTA [Suspect]
     Active Substance: VOXELOTOR
     Dosage: 1000 MG, 1X/DAY
     Route: 048
     Dates: start: 202312, end: 202401

REACTIONS (7)
  - Diarrhoea [Unknown]
  - Fatigue [Unknown]
  - Headache [Unknown]
  - Pain [Unknown]
  - Insomnia [Unknown]
  - Feeling abnormal [Unknown]
  - Off label use [Unknown]
